FAERS Safety Report 5208005-8 (Version None)
Quarter: 2007Q1

REPORT INFORMATION
  Report Type: 
  Country: None (occurrence: None)
  Receive Date: 20070110
  Receipt Date: 20070105
  Transmission Date: 20070707
  Serious: Yes (Hospitalization)
  Sender: FDA-Public Use
  Company Number: 2007-00046

PATIENT
  Age: 69 Year
  Sex: Male

DRUGS (1)
  1. ACETAMINOPHEN/CODEINE PHOSPHATE UNKNOWN STRENGTH (WATSON LABORATORIES) [Suspect]

REACTIONS (1)
  - HENOCH-SCHONLEIN PURPURA [None]
